FAERS Safety Report 15322171 (Version 1)
Quarter: 2018Q3

REPORT INFORMATION
  Report Type: Report from Study
  Country: US (occurrence: US)
  Receive Date: 20180827
  Receipt Date: 20180827
  Transmission Date: 20181010
  Serious: Yes (Hospitalization, Other)
  Sender: FDA-Public Use
  Company Number: US-BAYER-2018-156179

PATIENT
  Age: 37 Year
  Sex: Female

DRUGS (8)
  1. PROZAC [Concomitant]
     Active Substance: FLUOXETINE HYDROCHLORIDE
  2. MOBIC [Concomitant]
     Active Substance: MELOXICAM
  3. LISINOPRIL. [Concomitant]
     Active Substance: LISINOPRIL
  4. BETASERON [Suspect]
     Active Substance: INTERFERON BETA-1B
     Indication: MULTIPLE SCLEROSIS
     Dosage: 8 MIU, QOD
     Route: 058
     Dates: start: 19940912
  5. PRILOSEC [Concomitant]
     Active Substance: OMEPRAZOLE MAGNESIUM
  6. LEVETIRACETAM. [Concomitant]
     Active Substance: LEVETIRACETAM
  7. CARVEDILOL. [Concomitant]
     Active Substance: CARVEDILOL
  8. XANAX [Concomitant]
     Active Substance: ALPRAZOLAM

REACTIONS (3)
  - Lower limb fracture [None]
  - Seizure [None]
  - Seizure [Recovered/Resolved]

NARRATIVE: CASE EVENT DATE: 1996
